FAERS Safety Report 20732535 (Version 1)
Quarter: 2022Q2

REPORT INFORMATION
  Report Type: Spontaneous
  Country: None (occurrence: US)
  Receive Date: 20220420
  Receipt Date: 20220420
  Transmission Date: 20220721
  Serious: Yes (Death)
  Sender: FDA-Public Use
  Company Number: US-The Proactiv LLC-2127975

PATIENT
  Sex: Female

DRUGS (7)
  1. PROACTIV ACNE BODY WASH [Suspect]
     Active Substance: SALICYLIC ACID
     Indication: Acne
     Route: 065
  2. PROACTIV MD ADAPALENE ACNE TREATMENT [Concomitant]
     Active Substance: ADAPALENE
     Route: 065
  3. PROACTIV MD DAILY OIL CONTROL SPF 30 [Concomitant]
     Active Substance: AVOBENZONE\OCTISALATE\OCTOCRYLENE
     Route: 065
  4. Proactiv MD Ultra Hydrating Moisturizer (cosmetic) [Concomitant]
     Route: 065
  5. Proactiv Amazonian Clay Mask (cosmetic) [Concomitant]
     Route: 065
  6. Proactiv Post Acne Scar Gel (cosmetic) [Concomitant]
     Route: 065
  7. Proactiv MD Ultra Gentle Cleanser (cosmetic) [Concomitant]
     Route: 065

REACTIONS (3)
  - Rash [Unknown]
  - Skin reaction [Unknown]
  - Drug ineffective [Unknown]
